FAERS Safety Report 8349663-9 (Version None)
Quarter: 2012Q2

REPORT INFORMATION
  Report Type: 
  Country: None (occurrence: None)
  Receive Date: 20120510
  Receipt Date: 20120508
  Transmission Date: 20120825
  Serious: Yes (Hospitalization)
  Sender: FDA-Public Use
  Company Number: PHHO2011CN021457

PATIENT
  Sex: Male
  Weight: 63 kg

DRUGS (7)
  1. BLINDED FORTECORTIN [Suspect]
     Indication: MULTIPLE MYELOMA
     Dosage: DOUBLE BLINDED
     Route: 048
     Dates: start: 20111129
  2. COMPARATOR FORTECORTIN [Suspect]
     Indication: MULTIPLE MYELOMA
     Dosage: 20 MG, QW
     Route: 048
     Dates: start: 20111129, end: 20111223
  3. BORTEZOMIB [Suspect]
     Indication: MULTIPLE MYELOMA
     Dosage: 2.2 MG, BIW
     Route: 042
     Dates: start: 20111129, end: 20111223
  4. BLINDED LBH589 [Suspect]
     Indication: MULTIPLE MYELOMA
     Dosage: DOUBLE BLINDED
     Route: 048
     Dates: start: 20111129
  5. BLINDED NO TREATMENT RECEIVED [Suspect]
     Indication: MULTIPLE MYELOMA
     Dosage: DOUBLE BLINDED
     Route: 048
     Dates: start: 20111129
  6. PLACEBO [Suspect]
     Indication: MULTIPLE MYELOMA
     Dosage: DOUBLE BLINDED
     Route: 048
     Dates: start: 20111129
  7. VELCADE [Suspect]
     Indication: MULTIPLE MYELOMA
     Dosage: DOUBLE BLINDED
     Route: 048
     Dates: start: 20111129

REACTIONS (1)
  - HERPES ZOSTER [None]
